FAERS Safety Report 5867463-6 (Version None)
Quarter: 2008Q3

REPORT INFORMATION
  Report Type: 
  Country: None (occurrence: None)
  Receive Date: 20080902
  Receipt Date: 20080902
  Transmission Date: 20090109
  Serious: Yes (Hospitalization)
  Sender: FDA-Public Use
  Company Number: PHEH1996US06546

PATIENT
  Sex: Male
  Weight: 85 kg

DRUGS (11)
  1. NEORAL [Suspect]
     Route: 048
     Dates: start: 19960307
  2. ASPIRIN [Concomitant]
  3. IMURAN [Concomitant]
  4. COLACE (DOCUSATE SODIUM) [Concomitant]
  5. PEPCID [Concomitant]
  6. ALUPENT [Concomitant]
  7. DEMADEX [Concomitant]
  8. PAXIL [Concomitant]
  9. BACTRIM DS [Concomitant]
  10. PREDNISONE TAB [Concomitant]
  11. NORVASC [Concomitant]

REACTIONS (1)
  - PERICARDIAL EFFUSION [None]
